FAERS Safety Report 11090716 (Version 2)
Quarter: 2015Q3

REPORT INFORMATION
  Report Type: Spontaneous
  Country: US (occurrence: US)
  Receive Date: 20150505
  Receipt Date: 20150722
  Transmission Date: 20151125
  Serious: Yes (Other)
  Sender: FDA-Public Use
  Company Number: US-TEVA-558224USA

PATIENT
  Age: 81 Year
  Sex: Female
  Weight: 70.82 kg

DRUGS (10)
  1. CALCIUM CITRATE WITH B [Concomitant]
  2. IRON [Concomitant]
     Active Substance: IRON
     Indication: ANAEMIA
     Dosage: 2 DOSES
     Route: 042
     Dates: start: 20150706, end: 20150715
  3. SYNRIBO [Suspect]
     Active Substance: OMACETAXINE MEPESUCCINATE
     Indication: CHRONIC MYELOID LEUKAEMIA
     Dosage: 4.4 MILLIGRAM DAILY; HOME ADMINISTRATION
     Route: 065
     Dates: start: 201409
  4. CLOPIDOGREL [Concomitant]
     Active Substance: CLOPIDOGREL BISULFATE
  5. FUROSEMIDE. [Concomitant]
     Active Substance: FUROSEMIDE
  6. VITAMIN B COMPLEX [Concomitant]
     Active Substance: CYANOCOBALAMIN\DEXPANTHENOL\NIACINAMIDE\PYRIDOXINE HYDROCHLORIDE\RIBOFLAVIN 5^-PHOSPHATE SODIUM\THIAMINE HYDROCHLORIDE\VITAMIN B COMPLEX
  7. ALLOPURINOL. [Concomitant]
     Active Substance: ALLOPURINOL
  8. LEVOTHYROXINE. [Concomitant]
     Active Substance: LEVOTHYROXINE
  9. SYSTANE BALANCE EYE [Concomitant]
  10. CLARITIN [Concomitant]
     Active Substance: LORATADINE

REACTIONS (2)
  - Blood iron decreased [Unknown]
  - Diarrhoea [Not Recovered/Not Resolved]

NARRATIVE: CASE EVENT DATE: 20150423
